FAERS Safety Report 13691524 (Version 3)
Quarter: 2017Q3

REPORT INFORMATION
  Report Type: Report from Study
  Country: US (occurrence: US)
  Receive Date: 20170626
  Receipt Date: 20170906
  Transmission Date: 20171127
  Serious: Yes (Hospitalization, Congenital Anomaly)
  Sender: FDA-Public Use
  Company Number: US-TARO-2016TAR00900

PATIENT
  Age: 0 Day
  Sex: Male
  Weight: 2.27 kg

DRUGS (6)
  1. FOLIC ACID. [Concomitant]
     Active Substance: FOLIC ACID
     Dosage: 25 MG, 1X/DAY
     Route: 064
     Dates: start: 20161001, end: 20170512
  2. ATENOLOL. [Suspect]
     Active Substance: ATENOLOL
     Indication: HYPERTENSION
     Dosage: 50 MG, 1X/DAY
     Route: 064
     Dates: start: 20161001, end: 20170513
  3. FERROUS SULFATE. [Concomitant]
     Active Substance: FERROUS SULFATE
     Dosage: 200 MG, 1X/DAY
     Route: 064
     Dates: start: 20161001, end: 20170512
  4. PRENATAL VITAMINS [Concomitant]
     Active Substance: VITAMINS
     Dosage: 1 DOSAGE UNITS, UNK
     Route: 064
     Dates: start: 20161001, end: 20170512
  5. AMLODIPINE [Concomitant]
     Active Substance: AMLODIPINE BESYLATE
     Indication: HYPERTENSION
     Dosage: 10 MG, 2X/DAY
     Route: 064
     Dates: start: 2013, end: 20161001
  6. DAPSONE GEL [Suspect]
     Active Substance: DAPSONE
     Indication: ACNE
     Dosage: UNK, 1X/DAY
     Route: 064
     Dates: start: 2016, end: 20160930

REACTIONS (3)
  - Talipes [Not Recovered/Not Resolved]
  - Spina bifida [Recovered/Resolved]
  - Foetal exposure during pregnancy [Unknown]

NARRATIVE: CASE EVENT DATE: 20170513
